FAERS Safety Report 9515353 (Version 2)
Quarter: 2013Q3

REPORT INFORMATION
  Report Type: Spontaneous
  Country: BR (occurrence: BR)
  Receive Date: 20130911
  Receipt Date: 20130911
  Transmission Date: 20140515
  Serious: Yes (Other)
  Sender: FDA-Public Use
  Company Number: BR-SANOFI-AVENTIS-2012SA088240

PATIENT
  Age: 33 Year
  Sex: Female
  Weight: 60 kg

DRUGS (6)
  1. CLEXANE [Suspect]
     Indication: PROPHYLAXIS
     Dosage: STRENGTH: 40 MG,?STARTED ABOUT 10 DAYS AGO?1 INJECTION DAILY BETWEEN 5:00 PM AND 6:00 PM
     Route: 058
     Dates: start: 2012, end: 20130627
  2. CLEXANE [Suspect]
     Indication: PROPHYLAXIS
     Dosage: STRENGTH: 40 MG,?STARTED ABOUT 10 DAYS AGO?1 INJECTION DAILY BETWEEN 5:00 PM AND 6:00 PM
     Route: 058
     Dates: start: 20130630
  3. VITAMIN C [Concomitant]
     Route: 048
     Dates: start: 2012
  4. VITAMIN D [Concomitant]
     Route: 048
     Dates: start: 2012
  5. PREDNISONE [Concomitant]
     Indication: SERUM FERRITIN DECREASED
     Route: 048
     Dates: start: 2012, end: 20130628
  6. ENDOFOLIN [Concomitant]
     Indication: IRON DEFICIENCY
     Dosage: STARTED 3 YEARS AGO
     Route: 048
     Dates: start: 2000

REACTIONS (5)
  - Caesarean section [Unknown]
  - Exposure during pregnancy [Unknown]
  - Bleeding time prolonged [Unknown]
  - Placental disorder [Unknown]
  - Injection site haemorrhage [Unknown]
